FAERS Safety Report 16458200 (Version 1)
Quarter: 2019Q2

REPORT INFORMATION
  Report Type: Spontaneous
  Country: US (occurrence: US)
  Receive Date: 20190510
  Receipt Date: 20190510
  Transmission Date: 20190711
  Serious: Yes (Hospitalization)
  Sender: FDA-Public Use
  Company Number: None

PATIENT
  Age: 33 Year
  Sex: Male

DRUGS (3)
  1. SYMDEKO [Concomitant]
     Active Substance: IVACAFTOR\TEZACAFTOR
  2. PULMOZYME [Suspect]
     Active Substance: DORNASE ALFA
     Indication: CYSTIC FIBROSIS
     Route: 055
     Dates: start: 20180430
  3. CAYSTON [Concomitant]
     Active Substance: AZTREONAM

REACTIONS (1)
  - Hospitalisation [None]

NARRATIVE: CASE EVENT DATE: 20190510
